FAERS Safety Report 8856689 (Version 1)
Quarter: 2012Q4

REPORT INFORMATION
  Report Type: Spontaneous
  Country: CA (occurrence: None)
  Receive Date: 20121019
  Receipt Date: 20121019
  Transmission Date: 20130627
  Serious: Yes (Hospitalization)
  Sender: FDA-Public Use
  Company Number: AXC-2012-000459

PATIENT
  Age: 64 Year
  Sex: Female
  Weight: 47.6 kg

DRUGS (4)
  1. SALOFALK [Suspect]
     Indication: ULCERATIVE COLITIS
     Route: 054
  2. SALOFALK [Suspect]
     Indication: ULCERATIVE COLITIS
     Route: 054
     Dates: start: 20120729, end: 20120816
  3. SALOFALK [Suspect]
     Indication: ULCERATIVE COLITIS
     Dosage: 4 g, 3 to 4 times per week, Rectal
     Route: 054
     Dates: start: 20120817
  4. METHOTREXATE (METHOTREXATE) [Concomitant]

REACTIONS (4)
  - Intestinal perforation [None]
  - Alopecia [None]
  - Procedural complication [None]
  - Alopecia [None]
